FAERS Safety Report 7557791-0 (Version None)
Quarter: 2011Q2

REPORT INFORMATION
  Report Type: 
  Country: None (occurrence: None)
  Receive Date: 20110620
  Receipt Date: 20110610
  Transmission Date: 20111010
  Serious: Yes (Other)
  Sender: FDA-Public Use
  Company Number: FR-ASTRAZENECA-2011SE36219

PATIENT
  Age: 15760 Day
  Sex: Female

DRUGS (2)
  1. SYMBICORT [Suspect]
     Dosage: 160/4.5 UG WITH UNKNOWN FREQUENCY
     Route: 055
     Dates: start: 20110606, end: 20110608
  2. SYMBICORT [Suspect]
     Indication: ASTHMA
     Dosage: 160/4.5 UG WITH UNKNOWN FREQUENCY
     Route: 055
     Dates: start: 20110427

REACTIONS (4)
  - PYREXIA [None]
  - FATIGUE [None]
  - CYANOSIS [None]
  - TREMOR [None]
